FAERS Safety Report 22373026 (Version 1)
Quarter: 2023Q2

REPORT INFORMATION
  Report Type: Spontaneous
  Country: US (occurrence: None)
  Receive Date: 20230526
  Receipt Date: 20230526
  Transmission Date: 20230721
  Serious: No
  Sender: FDA-Public Use
  Company Number: None

PATIENT
  Age: 48 Year
  Sex: Female

DRUGS (8)
  1. AIMOVIG [Suspect]
     Active Substance: ERENUMAB-AOOE
     Indication: Migraine
     Dosage: 40MG/ML MONTHLY SUBCUTANEOUSLY?
     Route: 058
     Dates: start: 20210927, end: 2023
  2. CHONDROITIN SULFATE (BOVINE)\GLUCOSAMINE HYDROCHLORIDE [Concomitant]
     Active Substance: CHONDROITIN SULFATE (BOVINE)\GLUCOSAMINE HYDROCHLORIDE
  3. IBUPROFEN [Concomitant]
  4. MAGNESIUM [Concomitant]
  5. MULTIVITAMIN ADLT 50+ [Concomitant]
  6. SUMATRIPTAN [Concomitant]
  7. TIZANIDINE [Concomitant]
  8. VITAMIN D [Concomitant]
     Active Substance: VITAMIN D NOS

REACTIONS (2)
  - Toothache [None]
  - Therapy interrupted [None]
